FAERS Safety Report 20032753 (Version 1)
Quarter: 2021Q4

REPORT INFORMATION
  Report Type: Spontaneous
  Country: US (occurrence: US)
  Receive Date: 20211104
  Receipt Date: 20211104
  Transmission Date: 20220303
  Serious: Yes (Other)
  Sender: FDA-Public Use
  Company Number: US-PFIZER INC-202101410847

PATIENT
  Age: 57 Year
  Sex: Female
  Weight: 99.79 kg

DRUGS (2)
  1. LEVOXYL [Suspect]
     Active Substance: LEVOTHYROXINE SODIUM
     Indication: Thyroid disorder
     Dosage: 100 MG, 1X/DAY (TABLET IN MORNING AT 5:30)
     Dates: start: 202106, end: 202110
  2. TOPAMAX [Concomitant]
     Active Substance: TOPIRAMATE
     Indication: Seizure
     Dosage: 100 MG, 2X/DAY

REACTIONS (5)
  - Limb discomfort [Unknown]
  - Peripheral swelling [Unknown]
  - Inflammation [Unknown]
  - Pain [Unknown]
  - Weight increased [Unknown]

NARRATIVE: CASE EVENT DATE: 20210101
